FAERS Safety Report 19660127 (Version 1)
Quarter: 2021Q3

REPORT INFORMATION
  Report Type: Spontaneous
  Country: CA (occurrence: CA)
  Receive Date: 20210805
  Receipt Date: 20210805
  Transmission Date: 20211014
  Serious: Yes (Other)
  Sender: FDA-Public Use
  Company Number: NVSC2020CA239795

PATIENT
  Sex: Female
  Weight: 70 kg

DRUGS (4)
  1. RIBOCICLIB. [Suspect]
     Active Substance: RIBOCICLIB
     Indication: PRODUCT USED FOR UNKNOWN INDICATION
     Dosage: UNK
     Route: 065
     Dates: start: 202002, end: 202007
  2. ANASTROZOLE. [Concomitant]
     Active Substance: ANASTROZOLE
     Indication: BREAST CANCER METASTATIC
     Dosage: 1 MG, QD
     Route: 065
     Dates: start: 20200819
  3. LETROZOLE. [Suspect]
     Active Substance: LETROZOLE
     Indication: PRODUCT USED FOR UNKNOWN INDICATION
     Dosage: UNK
     Route: 065
     Dates: start: 202002, end: 202007
  4. IBRANCE [Suspect]
     Active Substance: PALBOCICLIB
     Indication: BREAST CANCER METASTATIC
     Dosage: 125 MG
     Route: 065
     Dates: start: 20200819

REACTIONS (7)
  - Drug intolerance [Unknown]
  - Rash [Recovered/Resolved]
  - Hypersensitivity [Unknown]
  - Swollen tongue [Unknown]
  - Gastrooesophageal reflux disease [Unknown]
  - Lip swelling [Recovered/Resolved]
  - Neoplasm progression [Unknown]
